FAERS Safety Report 7366550-3 (Version None)
Quarter: 2011Q1

REPORT INFORMATION
  Report Type: 
  Country: None (occurrence: None)
  Receive Date: 20110322
  Receipt Date: 20110218
  Transmission Date: 20110831
  Serious: Yes (Death)
  Sender: FDA-Public Use
  Company Number: US-KINGPHARMUSA00001-K201100276

PATIENT
  Age: 46 Year
  Sex: Female

DRUGS (6)
  1. HYDROMORPHONE HCL [Suspect]
     Dosage: UNK
  2. ALPRAZOLAM [Suspect]
     Dosage: UNK
  3. AVINZA [Suspect]
     Dosage: UNK
  4. ACETAMINOPHEN [Suspect]
     Dosage: UNK
  5. HYDROCODONE BITARTRATE [Suspect]
     Dosage: UNK
  6. OXYCODONE [Suspect]
     Dosage: UNK

REACTIONS (1)
  - MULTIPLE DRUG OVERDOSE ACCIDENTAL [None]
